FAERS Safety Report 17173316 (Version 3)
Quarter: 2020Q1

REPORT INFORMATION
  Report Type: Spontaneous
  Country: US (occurrence: US)
  Receive Date: 20191219
  Receipt Date: 20200219
  Transmission Date: 20200409
  Serious: Yes (Other)
  Sender: FDA-Public Use
  Company Number: US-HORIZON-RAV-0416-2019

PATIENT
  Age: 2 Year
  Sex: Male

DRUGS (5)
  1. RAVICTI [Suspect]
     Active Substance: GLYCEROL PHENYLBUTYRATE
     Indication: ARGININOSUCCINATE LYASE DEFICIENCY
     Dosage: 1.8ML (1.98G TOTAL) THREE TIMES DAILY
     Dates: end: 201912
  2. IRONUP 15MG/0.5ML DROPS [Concomitant]
  3. AGININE [Concomitant]
  4. VITAMIN D3 2400/ML LIQUID [Concomitant]
  5. OMEPRAZOLE 20MG CAPSULE DR [Concomitant]

REACTIONS (3)
  - Argininosuccinate lyase deficiency [Unknown]
  - Liver transplant [Recovered/Resolved]
  - Condition aggravated [Unknown]

NARRATIVE: CASE EVENT DATE: 20191213
